FAERS Safety Report 6432009-0 (Version None)
Quarter: 2009Q4

REPORT INFORMATION
  Report Type: 
  Country: None (occurrence: None)
  Receive Date: 20091109
  Receipt Date: 20091028
  Transmission Date: 20100525
  Serious: Yes (Hospitalization, Other)
  Sender: FDA-Public Use
  Company Number: JP-JNJFOC-20090800806

PATIENT
  Sex: Female
  Weight: 53 kg

DRUGS (1)
  1. REMICADE [Suspect]
     Indication: RHEUMATOID ARTHRITIS
     Dosage: 1 INFUSION ON AN UNSPECIFIED DATE
     Route: 042

REACTIONS (3)
  - DEVICE RELATED INFECTION [None]
  - POST PROCEDURAL INFECTION [None]
  - SHOULDER ARTHROPLASTY [None]
